FAERS Safety Report 9311210 (Version 4)
Quarter: 2015Q1

REPORT INFORMATION
  Report Type: Report from Study
  Country: JP (occurrence: JP)
  Receive Date: 20130528
  Receipt Date: 20150225
  Transmission Date: 20150721
  Serious: Yes (Hospitalization)
  Sender: FDA-Public Use
  Company Number: JP-PFIZER INC-2013158908

PATIENT
  Age: 77 Year
  Sex: Male
  Weight: 73 kg

DRUGS (14)
  1. BAYASPIRIN [Concomitant]
     Active Substance: ASPIRIN
     Dosage: 100 MG, 1X/DAY
     Route: 048
  2. MAGMITT [Concomitant]
     Active Substance: MAGNESIUM OXIDE
     Dosage: 330MG, 1-3 TIMES DAILY
     Route: 048
  3. DEPAS [Concomitant]
     Active Substance: ETIZOLAM
     Dosage: 0.5 MG, 1X/DAY
     Route: 048
  4. FAMOTIDINE. [Concomitant]
     Active Substance: FAMOTIDINE
     Dosage: 1 G, 1X/DAY
     Route: 048
  5. CRIZOTINIB [Suspect]
     Active Substance: CRIZOTINIB
     Dosage: 250 MG, 1X/DAY
     Route: 048
     Dates: start: 20130412, end: 20130416
  6. DIOVAN [Concomitant]
     Active Substance: VALSARTAN
     Dosage: 80 MG, 1X/DAY
     Route: 048
  7. NEUER [Concomitant]
     Active Substance: CETRAXATE HYDROCHLORIDE
     Dosage: 2 G, 1X/DAY
     Route: 048
  8. SOLDEM 1 [Concomitant]
     Dosage: UNK
     Route: 041
     Dates: start: 20130402, end: 20130412
  9. CRIZOTINIB [Suspect]
     Active Substance: CRIZOTINIB
     Indication: NON-SMALL CELL LUNG CANCER
     Dosage: 200 MG, 2X/DAY
     Route: 048
     Dates: start: 20130403, end: 20130408
  10. LOXOPROFEN SODIUM [Concomitant]
     Active Substance: LOXOPROFEN SODIUM
     Dosage: 60 MG, AS NEEDED
     Route: 048
  11. SOLDEM 1 [Concomitant]
     Dosage: UNK
     Dates: start: 20130416, end: 20130419
  12. AMLODIN [Concomitant]
     Active Substance: AMLODIPINE BESYLATE
     Dosage: 5 MG, 1X/DAY
     Route: 048
  13. LOXONIN [Concomitant]
     Active Substance: LOXOPROFEN SODIUM
     Dosage: 100 MG, AS NEEDED
     Route: 062
  14. HANGE-SHASHIN-TO [Concomitant]
     Active Substance: HERBALS
     Dosage: 2.5 G, 3X/DAY
     Route: 048
     Dates: start: 20130405, end: 20130409

REACTIONS (2)
  - Blood creatinine increased [Recovering/Resolving]
  - Blood creatinine increased [Recovered/Resolved]

NARRATIVE: CASE EVENT DATE: 20130408
